FAERS Safety Report 18489078 (Version 1)
Quarter: 2020Q4

REPORT INFORMATION
  Report Type: Spontaneous
  Country: NL (occurrence: NL)
  Receive Date: 20201111
  Receipt Date: 20201111
  Transmission Date: 20210114
  Serious: Yes (Hospitalization, Other)
  Sender: FDA-Public Use
  Company Number: NL-AUROBINDO-AUR-APL-2020-055339

PATIENT
  Age: 32 Year
  Sex: Male

DRUGS (3)
  1. PHENYTOIN. [Suspect]
     Active Substance: PHENYTOIN
     Indication: SEIZURE
     Dosage: 1000 MILLIGRAM
     Route: 042
  2. PHENYTOIN. [Suspect]
     Active Substance: PHENYTOIN
     Indication: INJURY
     Dosage: 150 MILLIGRAM, TWO TIMES A DAY
     Route: 042
  3. CEFUROXIME. [Concomitant]
     Active Substance: CEFUROXIME
     Indication: PNEUMONIA
     Dosage: UNK
     Route: 065

REACTIONS (5)
  - Renal failure [Recovered/Resolved]
  - Pyrexia [Unknown]
  - Lung disorder [Unknown]
  - Dyspnoea [Unknown]
  - Haemoptysis [Unknown]
